FAERS Safety Report 24181705 (Version 3)
Quarter: 2024Q4

REPORT INFORMATION
  Report Type: Spontaneous
  Country: US (occurrence: US)
  Receive Date: 20240807
  Receipt Date: 20241124
  Transmission Date: 20250114
  Serious: No
  Sender: VIIV
  Company Number: US-ViiV Healthcare Limited-114219

PATIENT
  Age: 48 Year
  Sex: Male
  Weight: 119 kg

DRUGS (3)
  1. CABOTEGRAVIR [Suspect]
     Active Substance: CABOTEGRAVIR
     Indication: Prophylaxis against HIV infection
     Dosage: 600 MG
     Route: 042
     Dates: start: 202210, end: 20240705
  2. CABOTEGRAVIR [Suspect]
     Active Substance: CABOTEGRAVIR
  3. CABOTEGRAVIR [Suspect]
     Active Substance: CABOTEGRAVIR

REACTIONS (4)
  - Fatigue [Recovered/Resolved with Sequelae]
  - Pyrexia [Unknown]
  - Chills [Unknown]
  - Impaired work ability [Unknown]

NARRATIVE: CASE EVENT DATE: 20221001
